FAERS Safety Report 8960105 (Version 1)
Quarter: 2012Q4

REPORT INFORMATION
  Report Type: 
  Country: US (occurrence: US)
  Receive Date: 20121212
  Receipt Date: 20121212
  Transmission Date: 20130627
  Serious: Yes (Hospitalization)
  Sender: FDA-Public Use
  Company Number: US-BAYER-2012-128626

PATIENT
  Age: 46 Year
  Sex: Female

DRUGS (9)
  1. YASMIN [Suspect]
  2. ESTRACE [Concomitant]
     Dosage: 1 mg, UNK
     Route: 048
  3. ALLI [Concomitant]
  4. CALCIUM [Concomitant]
  5. AZITHROMYCIN [Concomitant]
  6. VICODIN [Concomitant]
  7. PHENTERMINE [Concomitant]
  8. LEXAPRO [Concomitant]
  9. MOTRIN [Concomitant]

REACTIONS (2)
  - Pulmonary embolism [None]
  - Cholelithiasis [None]
